FAERS Safety Report 4288728-8 (Version None)
Quarter: 2004Q1

REPORT INFORMATION
  Report Type: 
  Country: None (occurrence: None)
  Receive Date: 20040205
  Receipt Date: 20040114
  Transmission Date: 20041129
  Serious: Yes (Hospitalization, Other)
  Sender: FDA-Public Use
  Company Number: HQWYE661812SEP03

PATIENT
  Age: 60 Year
  Sex: Female

DRUGS (7)
  1. BISOPROLOL FUMARATE [Suspect]
     Dosage: 3.75 MG 1X PER 1 DAY, ORAL
     Route: 048
     Dates: start: 20030815
  2. RAMIPRIL [Concomitant]
  3. LASIX [Concomitant]
  4. SINTROM [Concomitant]
  5. ESTRADIOL [Concomitant]
  6. PROGESTERONE [Concomitant]
  7. ACENOCOUMAROL (ACENOCOUMAROL) [Concomitant]

REACTIONS (7)
  - ABDOMINAL PAIN LOWER [None]
  - ANAEMIA [None]
  - BRADYCARDIA [None]
  - HYPERHIDROSIS [None]
  - HYPOTENSION [None]
  - INTERNATIONAL NORMALISED RATIO DECREASED [None]
  - MALAISE [None]
